FAERS Safety Report 8774736 (Version 2)
Quarter: 2013Q4

REPORT INFORMATION
  Report Type: Spontaneous
  Country: FI (occurrence: FI)
  Receive Date: 20120910
  Receipt Date: 20131031
  Transmission Date: 20140711
  Serious: Yes (Other)
  Sender: FDA-Public Use
  Company Number: FI-009507513-1208FIN008860

PATIENT
  Age: 26 Year
  Sex: Female

DRUGS (1)
  1. NEXPLANON [Suspect]
     Dosage: UNK
     Dates: start: 201206, end: 20120816

REACTIONS (4)
  - Shock hypoglycaemic [Unknown]
  - Blood glucose decreased [Unknown]
  - Blood glucose fluctuation [Unknown]
  - Acne [Unknown]
